FAERS Safety Report 13862915 (Version 2)
Quarter: 2017Q3

REPORT INFORMATION
  Report Type: Spontaneous
  Country: BE (occurrence: BE)
  Receive Date: 20170814
  Receipt Date: 20170825
  Transmission Date: 20171127
  Serious: Yes (Hospitalization, Other)
  Sender: FDA-Public Use
  Company Number: BE-SUN PHARMACEUTICAL INDUSTRIES LTD-2017R1-147543

PATIENT
  Age: 69 Year
  Sex: Female

DRUGS (2)
  1. PARACETAMOL [Suspect]
     Active Substance: ACETAMINOPHEN
     Indication: PRODUCT USED FOR UNKNOWN INDICATION
     Dosage: HIGH DOSES
     Route: 065
  2. FOSFOMYCINE [Suspect]
     Active Substance: FOSFOMYCIN
     Indication: ANTIBIOTIC THERAPY
     Dosage: UNK
     Route: 065

REACTIONS (6)
  - Metabolic acidosis [Unknown]
  - Urosepsis [Unknown]
  - Depressed level of consciousness [Unknown]
  - Renal impairment [Unknown]
  - Diarrhoea [Unknown]
  - Toxicity to various agents [Unknown]
